FAERS Safety Report 7612775-9 (Version None)
Quarter: 2011Q3

REPORT INFORMATION
  Report Type: 
  Country: None (occurrence: None)
  Receive Date: 20110708
  Receipt Date: 20110627
  Transmission Date: 20111222
  Serious: Yes (Other)
  Sender: FDA-Public Use
  Company Number: OMPQ-NO-1106S-0619

PATIENT
  Age: 23 Year
  Sex: Male

DRUGS (1)
  1. OMNIPAQUE (IOHEXOL) [Suspect]
     Indication: PRODUCT USED FOR UNKNOWN INDICATION
     Dosage: 80 ML, SINGLE DOSE, INTRAVENOUS
     Route: 042
     Dates: start: 20110601, end: 20110601

REACTIONS (1)
  - INJECTION SITE EXTRAVASATION [None]
